FAERS Safety Report 9764301 (Version 1)
Quarter: 2013Q4

REPORT INFORMATION
  Report Type: Report from Study
  Country: US (occurrence: US)
  Receive Date: 20131217
  Receipt Date: 20131217
  Transmission Date: 20140711
  Serious: Yes (Other)
  Sender: FDA-Public Use
  Company Number: US-ROCHE-1320568

PATIENT
  Sex: 0

DRUGS (3)
  1. CAPECITABINE [Suspect]
     Indication: PANCREATIC CARCINOMA METASTATIC
     Dosage: CAPPED AT 2500MG/DAY FOR DAYS 1-14;
     Route: 065
  2. GEMCITABINE [Suspect]
     Indication: PANCREATIC CARCINOMA METASTATIC
     Dosage: ON DAYS 4 AND 11 GIVEN OVER 75MINS
     Route: 065
  3. DOCETAXEL [Suspect]
     Indication: PANCREATIC CARCINOMA METASTATIC
     Route: 065

REACTIONS (9)
  - Leukopenia [Unknown]
  - Neutropenia [Unknown]
  - Febrile neutropenia [Unknown]
  - Anaemia [Unknown]
  - Thrombocytopenia [Unknown]
  - Diarrhoea [Unknown]
  - Palmar-plantar erythrodysaesthesia syndrome [Unknown]
  - Fatigue [Unknown]
  - Mucosal inflammation [Unknown]
